FAERS Safety Report 5704535-0 (Version None)
Quarter: 2008Q2

REPORT INFORMATION
  Report Type: 
  Country: None (occurrence: None)
  Receive Date: 20080414
  Receipt Date: 20080401
  Transmission Date: 20081010
  Serious: Yes (Other)
  Sender: FDA-Public Use
  Company Number: JP-ROCHE-556903

PATIENT
  Sex: Male
  Weight: 27 kg

DRUGS (4)
  1. TAMIFLU [Suspect]
     Dosage: OTHER INDICATION: INFLUENZA B VIRUS INFECTION
     Route: 048
     Dates: start: 20080124, end: 20080125
  2. CEFZON [Concomitant]
     Dosage: FORM: FINE GRANULES
     Route: 065
     Dates: start: 20080124, end: 20080127
  3. LAC-B [Concomitant]
     Route: 048
     Dates: start: 20080124, end: 20080127
  4. MUCOSAL [Concomitant]
     Route: 048
     Dates: start: 20080124, end: 20080127

REACTIONS (1)
  - ABNORMAL BEHAVIOUR [None]
